FAERS Safety Report 9596287 (Version 1)
Quarter: 2013Q4

REPORT INFORMATION
  Report Type: Spontaneous
  Country: DE (occurrence: DE)
  Receive Date: 20131004
  Receipt Date: 20131004
  Transmission Date: 20140711
  Serious: Yes (Other)
  Sender: FDA-Public Use
  Company Number: DE-UCBSA-099005

PATIENT
  Age: 21 Year
  Sex: Female
  Weight: 50 kg

DRUGS (3)
  1. KEPPRA [Suspect]
     Dosage: 250 MG. 10 TABLETS. TOTAL AMOUNT-2500 MG
     Dates: start: 20130921, end: 20130921
  2. PARACETAMOL [Suspect]
     Dosage: 500. 4 TABLETS. 2000 MG.
     Dates: start: 20130921, end: 20130921
  3. VALPROAT [Suspect]
     Dosage: 300. 16 TABLETS. TOTAL AMOUNT-4800 MG
     Dates: start: 20130921, end: 20130921

REACTIONS (2)
  - Suicide attempt [Unknown]
  - Sopor [Unknown]
